FAERS Safety Report 18094627 (Version 2)
Quarter: 2020Q3

REPORT INFORMATION
  Report Type: Spontaneous
  Country: US (occurrence: US)
  Receive Date: 20200731
  Receipt Date: 20200930
  Transmission Date: 20201103
  Serious: No
  Sender: FDA-Public Use
  Company Number: US-AMGEN-USASP2020120672

PATIENT
  Age: 60 Year
  Sex: Male

DRUGS (1)
  1. REPATHA [Suspect]
     Active Substance: EVOLOCUMAB
     Indication: BLOOD CHOLESTEROL INCREASED
     Dosage: 140 MILLIGRAM
     Route: 065
     Dates: start: 20200719

REACTIONS (5)
  - Rhinorrhoea [Unknown]
  - Sinus pain [Unknown]
  - Sneezing [Unknown]
  - Oropharyngeal pain [Unknown]
  - Paranasal sinus inflammation [Unknown]

NARRATIVE: CASE EVENT DATE: 20200723
